FAERS Safety Report 12493037 (Version 1)
Quarter: 2016Q2

REPORT INFORMATION
  Report Type: Report from Study
  Country: PL (occurrence: PL)
  Receive Date: 20160623
  Receipt Date: 20160623
  Transmission Date: 20160815
  Serious: Yes (Hospitalization)
  Sender: FDA-Public Use
  Company Number: PL-KADMON PHARMACEUTICALS, LLC-KAD201606-002212

PATIENT
  Age: 70 Year
  Sex: Male
  Weight: 78 kg

DRUGS (14)
  1. TAMSULOSIN [Concomitant]
     Active Substance: TAMSULOSIN
  2. FUROSEMIDE. [Concomitant]
     Active Substance: FUROSEMIDE
  3. SPIRONOLACTONE. [Concomitant]
     Active Substance: SPIRONOLACTONE
  4. POTASSIUM CHLORIDE. [Concomitant]
     Active Substance: POTASSIUM CHLORIDE
  5. RAMIPRIL. [Concomitant]
     Active Substance: RAMIPRIL
     Indication: HYPERTENSION
  6. VIEKIRAX [Suspect]
     Active Substance: OMBITASVIR\PARITAPREVIR\RITONAVIR
     Indication: CHRONIC HEPATITIS C
     Dosage: TABLET
     Route: 048
     Dates: start: 20160209, end: 20160502
  7. FOLIC ACID. [Concomitant]
     Active Substance: FOLIC ACID
  8. RIBAVIRIN. [Suspect]
     Active Substance: RIBAVIRIN
     Indication: CHRONIC HEPATITIS C
     Dosage: TABLET
     Route: 048
     Dates: start: 20160209, end: 20160216
  9. CARVEDILOL. [Concomitant]
     Active Substance: CARVEDILOL
  10. NORFLOXACIN [Concomitant]
     Active Substance: NORFLOXACIN
  11. PHYTOMENADIONE [Concomitant]
     Active Substance: PHYTONADIONE
  12. FERRIC SULFATE [Concomitant]
     Active Substance: FERRIC SULFATE
  13. RIBAVIRIN. [Suspect]
     Active Substance: RIBAVIRIN
     Dosage: TABLET
     Route: 048
     Dates: start: 20160216, end: 20160217
  14. FERRUM LEK [Concomitant]
     Active Substance: FERROUS HYDROXIDE

REACTIONS (1)
  - Hepatic failure [Recovered/Resolved]

NARRATIVE: CASE EVENT DATE: 20160502
